FAERS Safety Report 8165255-9 (Version None)
Quarter: 2012Q1

REPORT INFORMATION
  Report Type: 
  Country: None (occurrence: None)
  Receive Date: 20120223
  Receipt Date: 20120223
  Transmission Date: 20120608
  Serious: No
  Sender: FDA-Public Use
  Company Number: None

PATIENT
  Sex: Female
  Weight: 46.0855 kg

DRUGS (2)
  1. PERCOCET [Suspect]
     Indication: PAIN
     Dosage: 10MG/660MG ONE Q4-6 HRS ORAL
     Route: 048
     Dates: start: 20080101, end: 20120101
  2. VICODIN [Suspect]

REACTIONS (2)
  - DRUG INEFFECTIVE [None]
  - TREATMENT FAILURE [None]
